FAERS Safety Report 7132164-3 (Version None)
Quarter: 2010Q4

REPORT INFORMATION
  Report Type: 
  Country: None (occurrence: None)
  Receive Date: 20101124
  Receipt Date: 20101124
  Transmission Date: 20110411
  Serious: No
  Sender: FDA-Public Use
  Company Number: None

PATIENT

DRUGS (2)
  1. CREST 3D WHITE ADVANCED VIVID FLUORIDE TOOTHPASTE, REFRESHING MINT [Suspect]
     Dosage: 1-2X DAILY FOR 5 WEEKS
     Dates: start: 20100801, end: 20100909
  2. CREST 3D WHITE ADVANCED VIVID FLUORIDE TOOTHPASTE, REFRESHING MINT [Suspect]
     Dosage: 1-2X DAILY FOR 5 WEEKS
     Dates: start: 20100909

REACTIONS (1)
  - TOOTH DISORDER [None]
